FAERS Safety Report 5772806-8 (Version None)
Quarter: 2008Q2

REPORT INFORMATION
  Report Type: 
  Country: None (occurrence: None)
  Receive Date: 20080613
  Receipt Date: 20080605
  Transmission Date: 20081010
  Serious: Yes (Hospitalization, Other)
  Sender: FDA-Public Use
  Company Number: US-PFIZER INC-2008028625

PATIENT
  Sex: Male

DRUGS (1)
  1. LIPITOR [Suspect]
     Indication: BLOOD CHOLESTEROL INCREASED

REACTIONS (11)
  - ADVERSE DRUG REACTION [None]
  - ASTHENIA [None]
  - BLOOD CREATINE PHOSPHOKINASE INCREASED [None]
  - COAGULOPATHY [None]
  - ECONOMIC PROBLEM [None]
  - FATIGUE [None]
  - FEELING ABNORMAL [None]
  - LABORATORY TEST ABNORMAL [None]
  - MALAISE [None]
  - MUSCLE ATROPHY [None]
  - TRANSAMINASES INCREASED [None]
